FAERS Safety Report 7635294-2 (Version None)
Quarter: 2011Q3

REPORT INFORMATION
  Report Type: 
  Country: None (occurrence: None)
  Receive Date: 20110718
  Receipt Date: 20110608
  Transmission Date: 20111222
  Serious: Yes (Hospitalization)
  Sender: FDA-Public Use
  Company Number: 2011SA036542

PATIENT
  Age: 63 Year
  Sex: Male
  Weight: 64 kg

DRUGS (7)
  1. MS CONTIN [Concomitant]
  2. CARBOPLATIN [Suspect]
     Indication: LUNG SQUAMOUS CELL CARCINOMA STAGE UNSPECIFIED
     Dosage: 5 UNIT(S);WEEKLY;INTRAVENOUS DRIP, 530 MILLIGRAM(S);WEEKLY;INTRAVENOUS DRIP
     Route: 041
     Dates: start: 20110429, end: 20110429
  3. CARBOPLATIN [Suspect]
     Indication: LUNG SQUAMOUS CELL CARCINOMA STAGE UNSPECIFIED
     Dosage: 5 UNIT(S);WEEKLY;INTRAVENOUS DRIP, 530 MILLIGRAM(S);WEEKLY;INTRAVENOUS DRIP
     Route: 041
     Dates: start: 20110520, end: 20110520
  4. SENOKOT [Concomitant]
  5. GEMCITABINE [Suspect]
     Indication: LUNG SQUAMOUS CELL CARCINOMA STAGE UNSPECIFIED
     Dosage: 1000 MILLIGRAM(S)/SQUARE METER;EVERY CYCLE; INTRAVENOUS DRIP 1820 MILLIGRAM(S);EVERY CYCLE;INTRAVENO
     Route: 041
  6. OXYCODONE HCL [Concomitant]
  7. PEPCID AC [Concomitant]

REACTIONS (10)
  - ABDOMINAL PAIN UPPER [None]
  - EMPHYSEMA [None]
  - PULMONARY MASS [None]
  - SPLENIC INFARCTION [None]
  - ATELECTASIS [None]
  - PULMONARY EMBOLISM [None]
  - METASTASES TO LIVER [None]
  - PLEURAL EFFUSION [None]
  - RENAL CYST [None]
  - DEEP VEIN THROMBOSIS [None]
